FAERS Safety Report 6891234-5 (Version None)
Quarter: 2010Q3

REPORT INFORMATION
  Report Type: 
  Country: None (occurrence: None)
  Receive Date: 20100731
  Receipt Date: 20090708
  Transmission Date: 20110219
  Serious: No
  Sender: FDA-Public Use
  Company Number: US-PFIZER INC-2009215825

PATIENT
  Sex: Male
  Weight: 79.378 kg

DRUGS (2)
  1. LIPITOR [Suspect]
     Indication: BLOOD CHOLESTEROL INCREASED
  2. VERAPAMIL HYDROCHLORIDE [Concomitant]

REACTIONS (1)
  - ERECTILE DYSFUNCTION [None]
